FAERS Safety Report 14725559 (Version 1)
Quarter: 2018Q2

REPORT INFORMATION
  Report Type: Report from Study
  Country: BR (occurrence: BR)
  Receive Date: 20180406
  Receipt Date: 20180406
  Transmission Date: 20180711
  Serious: Yes (Other)
  Sender: FDA-Public Use
  Company Number: BR-ROCHE-2097438

PATIENT
  Sex: Female
  Weight: 65 kg

DRUGS (4)
  1. KADCYLA [Suspect]
     Active Substance: ADO-TRASTUZUMAB EMTANSINE
     Indication: HER-2 POSITIVE BREAST CANCER
     Dosage: 19 CYCLES
     Route: 065
     Dates: start: 20150114, end: 20160209
  2. HERCEPTIN [Suspect]
     Active Substance: TRASTUZUMAB
     Indication: HER-2 POSITIVE BREAST CANCER
     Dosage: INITIAL DOSE 8MG/KG; SUBSEQUENT CYCLES: 6MG/KG
     Route: 065
     Dates: start: 20131228, end: 20141228
  3. PERJETA [Suspect]
     Active Substance: PERTUZUMAB
     Indication: HER-2 POSITIVE BREAST CANCER
     Dosage: INITIAL DOSE 840MG; SUBSEQUENT CYCLES: 420MG
     Route: 065
     Dates: start: 20131228, end: 20141210
  4. TAXOTERE [Suspect]
     Active Substance: DOCETAXEL
     Indication: HER-2 POSITIVE BREAST CANCER
     Route: 065
     Dates: start: 20131228, end: 20141228

REACTIONS (2)
  - Drug ineffective [Unknown]
  - Disease progression [Unknown]
